FAERS Safety Report 8676366 (Version 4)
Quarter: 2013Q2

REPORT INFORMATION
  Report Type: Spontaneous
  Country: US (occurrence: US)
  Receive Date: 20120720
  Receipt Date: 20130509
  Transmission Date: 20140414
  Serious: No
  Sender: FDA-Public Use
  Company Number: US-PFIZER INC-2012170909

PATIENT
  Age: 55 Year
  Sex: Male

DRUGS (4)
  1. GLUCOTROL XL [Suspect]
     Dosage: UNK
  2. LIPITOR [Suspect]
     Indication: BLOOD CHOLESTEROL INCREASED
     Dosage: 10 MG, DAILY DOSE
     Route: 048
     Dates: start: 2003, end: 201206
  3. CELEBREX [Suspect]
     Indication: ARTHRITIS
     Dosage: UNK
  4. ANTARA [Concomitant]
     Dosage: 130 MG
     Dates: start: 20120420, end: 201206

REACTIONS (1)
  - Muscle spasms [Recovered/Resolved]
